FAERS Safety Report 11855746 (Version 1)
Quarter: 2015Q4

REPORT INFORMATION
  Report Type: Spontaneous
  Country: US (occurrence: US)
  Receive Date: 20151221
  Receipt Date: 20151221
  Transmission Date: 20160305
  Serious: Yes (Other)
  Sender: FDA-Public Use
  Company Number: US-BAYER-2015-487999

PATIENT
  Age: 72 Year
  Sex: Male
  Weight: 90.7 kg

DRUGS (6)
  1. LISINOPRIL. [Concomitant]
     Active Substance: LISINOPRIL
  2. FINASTERIDE. [Concomitant]
     Active Substance: FINASTERIDE
  3. DILTIAZEM [Concomitant]
     Active Substance: DILTIAZEM
  4. OMEPRAZOLE. [Concomitant]
     Active Substance: OMEPRAZOLE
  5. ALEVE [Suspect]
     Active Substance: NAPROXEN SODIUM
     Indication: ANALGESIC THERAPY
     Dosage: 2 DF, UNK
     Route: 048
  6. SIMVASTATIN. [Concomitant]
     Active Substance: SIMVASTATIN

REACTIONS (2)
  - Haematuria [None]
  - Chromaturia [None]

NARRATIVE: CASE EVENT DATE: 20151201
